FAERS Safety Report 5619854-6 (Version None)
Quarter: 2008Q1

REPORT INFORMATION
  Report Type: 
  Country: None (occurrence: None)
  Receive Date: 20080208
  Receipt Date: 20080205
  Transmission Date: 20080703
  Serious: Yes (Death)
  Sender: FDA-Public Use
  Company Number: CA-NOVOPROD-271822

PATIENT

DRUGS (1)
  1. NOVOMIX 30 PENFILL 3 ML [Suspect]
     Indication: TYPE 2 DIABETES MELLITUS
     Dosage: 40 IU, QD
     Route: 058
     Dates: start: 20070517, end: 20070725

REACTIONS (1)
  - DEATH [None]
